FAERS Safety Report 6711869-X (Version None)
Quarter: 2010Q2

REPORT INFORMATION
  Report Type: 
  Country: None (occurrence: None)
  Receive Date: 20100505
  Receipt Date: 20100423
  Transmission Date: 20101027
  Serious: Yes (Other)
  Sender: FDA-Public Use
  Company Number: IN-ELI_LILLY_AND_COMPANY-IN201004006971

PATIENT
  Sex: Female

DRUGS (2)
  1. GEMCITE [Suspect]
     Indication: BREAST CANCER
     Dosage: UNK, UNKNOWN
     Route: 042
     Dates: start: 20100401
  2. TAXIM [Concomitant]
     Indication: BREAST CANCER
     Dosage: UNK, UNKNOWN
     Route: 065
     Dates: start: 20100401

REACTIONS (2)
  - MOVEMENT DISORDER [None]
  - NEUROPATHY PERIPHERAL [None]
